FAERS Safety Report 6194857-4 (Version None)
Quarter: 2009Q2

REPORT INFORMATION
  Report Type: 
  Country: None (occurrence: None)
  Receive Date: 20090519
  Receipt Date: 20090509
  Transmission Date: 20091009
  Serious: Yes (Hospitalization)
  Sender: FDA-Public Use
  Company Number: IT-PFIZER INC-2009203712

PATIENT
  Age: 72 Year

DRUGS (5)
  1. SUTENT [Suspect]
     Indication: RENAL CANCER
     Dosage: 25 MG, 1X/DAY
     Route: 048
     Dates: start: 20081013
  2. TELMISARTAN ^BOEHRINGER INGELHEIM^ [Concomitant]
     Dosage: 92.5 MG, UNK
     Route: 048
  3. WARFARIN SODIUM [Concomitant]
     Route: 048
  4. DILTIAZEM [Concomitant]
     Dosage: 90 MG, UNK
     Route: 048
  5. TRIATEC [Concomitant]
     Dosage: 10 MG, UNK
     Route: 048

REACTIONS (1)
  - PNEUMONIA [None]
